FAERS Safety Report 12405797 (Version 1)
Quarter: 2016Q2

REPORT INFORMATION
  Report Type: Spontaneous
  Country: US (occurrence: None)
  Receive Date: 20160525
  Receipt Date: 20160525
  Transmission Date: 20160815
  Serious: Yes (Hospitalization, Disabling, Other)
  Sender: FDA-Public Use
  Company Number: None

PATIENT
  Age: 81 Year
  Sex: Female
  Weight: 81.65 kg

DRUGS (9)
  1. VITAMIN D3 [Concomitant]
     Active Substance: CHOLECALCIFEROL
  2. VITAMIN C [Concomitant]
     Active Substance: ASCORBIC ACID
  3. JUICE PLUS FRUIT AND VEGETABLE CUPS [Concomitant]
  4. JUICE PLUS VINEYARD BLEND [Concomitant]
  5. LEVOFLOXACIN. [Suspect]
     Active Substance: LEVOFLOXACIN
     Indication: PNEUMONIA
     Route: 048
     Dates: start: 20160322, end: 20160401
  6. CALCIUM [Concomitant]
     Active Substance: CALCIUM
  7. MAGNESIUM GLYCINATE [Concomitant]
     Active Substance: MAGNESIUM GLYCINATE
  8. MIRALAX [Concomitant]
     Active Substance: POLYETHYLENE GLYCOL 3350
  9. CARBON 98 [Concomitant]

REACTIONS (11)
  - Head discomfort [None]
  - Presyncope [None]
  - Heart rate increased [None]
  - Asthenia [None]
  - Glossodynia [None]
  - Sensation of foreign body [None]
  - Blood pressure increased [None]
  - Palpitations [None]
  - Dyspnoea [None]
  - Arthralgia [None]
  - Candida infection [None]

NARRATIVE: CASE EVENT DATE: 20160404
